FAERS Safety Report 18702025 (Version 1)
Quarter: 2021Q1

REPORT INFORMATION
  Report Type: Spontaneous
  Country: US (occurrence: US)
  Receive Date: 20210105
  Receipt Date: 20210105
  Transmission Date: 20210419
  Serious: No
  Sender: FDA-Public Use
  Company Number: None

PATIENT
  Age: 65 Year
  Sex: Male

DRUGS (2)
  1. PREGNENOLONE [Concomitant]
     Active Substance: PREGNENOLONE
  2. HUMIRA [Suspect]
     Active Substance: ADALIMUMAB
     Indication: RHEUMATOID ARTHRITIS
     Dosage: OTHER FREQUENCY:Q3WKS;?
     Route: 058
     Dates: start: 20171120

REACTIONS (2)
  - Therapy interrupted [None]
  - Hip arthroplasty [None]

NARRATIVE: CASE EVENT DATE: 20201114
